FAERS Safety Report 8126548-4 (Version None)
Quarter: 2012Q1

REPORT INFORMATION
  Report Type: 
  Country: None (occurrence: None)
  Receive Date: 20120210
  Receipt Date: 20120131
  Transmission Date: 20120608
  Serious: Yes (Hospitalization, Other)
  Sender: FDA-Public Use
  Company Number: FR-AMGEN-FRASP2011053689

PATIENT
  Age: 37 Year
  Sex: Female
  Weight: 76 kg

DRUGS (1)
  1. ENBREL [Suspect]
     Indication: RHEUMATOID ARTHRITIS
     Dosage: 50 MG, WEEKLY
     Dates: start: 20100805, end: 20111007

REACTIONS (6)
  - DEMYELINATION [None]
  - BRAIN STEM ISCHAEMIA [None]
  - HYPOAESTHESIA [None]
  - PARAESTHESIA [None]
  - FATIGUE [None]
  - DYSAESTHESIA [None]
